FAERS Safety Report 24173829 (Version 1)
Quarter: 2024Q3

REPORT INFORMATION
  Report Type: Spontaneous
  Country: DE (occurrence: DE)
  Receive Date: 20240805
  Receipt Date: 20240805
  Transmission Date: 20241017
  Serious: Yes (Other)
  Sender: ACCORD
  Company Number: None

PATIENT
  Age: 63 Year
  Sex: Female

DRUGS (1)
  1. FINGOLIMOD [Suspect]
     Active Substance: FINGOLIMOD
     Indication: Multiple sclerosis
     Dosage: 0,5 MG/D
     Dates: start: 20120116

REACTIONS (2)
  - Janus kinase 2 mutation [Unknown]
  - Essential thrombocythaemia [Unknown]

NARRATIVE: CASE EVENT DATE: 20240718
